FAERS Safety Report 9604312 (Version 2)
Quarter: 2014Q1

REPORT INFORMATION
  Report Type: Report from Study
  Country: NL (occurrence: NL)
  Receive Date: 20131008
  Receipt Date: 20140209
  Transmission Date: 20141002
  Serious: Yes (Death)
  Sender: FDA-Public Use
  Company Number: PHHY2013NL112161

PATIENT
  Sex: Female

DRUGS (3)
  1. ACLASTA [Suspect]
     Indication: OSTEOPOROSIS
     Dosage: 5 MG, ONCE EVERY 52 WEEKS
     Route: 042
     Dates: start: 20120127
  2. ACLASTA [Suspect]
     Dosage: 5 MG, ONCE EVERY 52 WEEKS
     Route: 042
     Dates: start: 20130319
  3. CALCIUM + VITAMIN D                /01483701/ [Concomitant]
     Dosage: 1 DF, UNK
     Dates: start: 2012

REACTIONS (3)
  - Injury [Fatal]
  - Neurological decompensation [Fatal]
  - Decubitus ulcer [Fatal]
